FAERS Safety Report 6039134-7 (Version None)
Quarter: 2009Q1

REPORT INFORMATION
  Report Type: 
  Country: None (occurrence: None)
  Receive Date: 20090115
  Receipt Date: 20090112
  Transmission Date: 20090719
  Serious: Yes (Hospitalization)
  Sender: FDA-Public Use
  Company Number: US-GILEAD-2009-0019809

PATIENT
  Sex: Female

DRUGS (1)
  1. LETAIRIS [Suspect]
     Dates: start: 20081201

REACTIONS (1)
  - PLATELET COUNT DECREASED [None]
